FAERS Safety Report 9924251 (Version 2)
Quarter: 2015Q4

REPORT INFORMATION
  Report Type: Spontaneous
  Country: RU (occurrence: RU)
  Receive Date: 20140226
  Receipt Date: 20151222
  Transmission Date: 20160305
  Serious: Yes (Life-Threatening, Other)
  Sender: FDA-Public Use
  Company Number: RU-ABBVIE-14P-251-1204924-00

PATIENT
  Age: 7 Year
  Sex: Male
  Weight: 22 kg

DRUGS (3)
  1. FENTANYL. [Concomitant]
     Active Substance: FENTANYL
     Indication: PRODUCT USED FOR UNKNOWN INDICATION
  2. ARDUAN [Concomitant]
     Active Substance: PIPECURONIUM BROMIDE
     Indication: PRODUCT USED FOR UNKNOWN INDICATION
  3. SEVORANE [Suspect]
     Active Substance: SEVOFLURANE
     Indication: INDUCTION OF ANAESTHESIA
     Route: 055
     Dates: start: 20140219, end: 20140219

REACTIONS (6)
  - Ischaemia [Unknown]
  - Sedation [Unknown]
  - Hypercapnia [Unknown]
  - Acidosis [Not Recovered/Not Resolved]
  - Arrhythmia [Recovered/Resolved]
  - Hyperthermia [Recovering/Resolving]

NARRATIVE: CASE EVENT DATE: 20140219
